FAERS Safety Report 15200071 (Version 1)
Quarter: 2018Q3

REPORT INFORMATION
  Report Type: Spontaneous
  Country: US (occurrence: US)
  Receive Date: 20180725
  Receipt Date: 20180725
  Transmission Date: 20181010
  Serious: No
  Sender: FDA-Public Use
  Company Number: US-TEVA-2018-US-932631

PATIENT
  Sex: Female

DRUGS (4)
  1. PROVIGIL [Concomitant]
     Active Substance: MODAFINIL
  2. MULTIVITAMINS [Concomitant]
     Active Substance: VITAMINS
  3. VESICARE [Concomitant]
     Active Substance: SOLIFENACIN SUCCINATE
  4. COPAXONE [Suspect]
     Active Substance: GLATIRAMER ACETATE
     Indication: MULTIPLE SCLEROSIS
     Route: 058
     Dates: start: 20180426

REACTIONS (1)
  - Tooth infection [Unknown]
